FAERS Safety Report 8586155-6 (Version None)
Quarter: 2012Q3

REPORT INFORMATION
  Report Type: 
  Country: None (occurrence: None)
  Receive Date: 20120810
  Receipt Date: 20120703
  Transmission Date: 20120928
  Serious: Yes (Other)
  Sender: FDA-Public Use
  Company Number: CA-GLAXOSMITHKLINE-A0983205A

PATIENT
  Sex: Female

DRUGS (3)
  1. FLUTICASONE PROPIONATE [Suspect]
     Indication: PRODUCT USED FOR UNKNOWN INDICATION
     Dosage: 1PUFF TWICE PER DAY
     Route: 065
     Dates: start: 20120101
  2. SPIRIVA [Concomitant]
     Route: 065
  3. VENTOLIN [Concomitant]
     Route: 065

REACTIONS (2)
  - STOMATITIS [None]
  - DYSPHONIA [None]
